FAERS Safety Report 10210711 (Version 1)
Quarter: 2014Q2

REPORT INFORMATION
  Report Type: Report from Study
  Country: US (occurrence: US)
  Receive Date: 20140602
  Receipt Date: 20140602
  Transmission Date: 20141212
  Serious: Yes (Hospitalization, Other)
  Sender: FDA-Public Use
  Company Number: US-SA-2014SA069751

PATIENT
  Age: 68 Year
  Sex: Male

DRUGS (2)
  1. LANTUS SOLOSTAR [Suspect]
     Indication: DIABETES MELLITUS
     Dosage: DOSE:22 UNIT(S)
     Route: 065
     Dates: start: 2004
  2. NOVOLOG [Concomitant]
     Dosage: DOSE:10 UNIT(S)

REACTIONS (6)
  - Diabetic coma [Not Recovered/Not Resolved]
  - Urinary tract infection [Not Recovered/Not Resolved]
  - Blindness [Not Recovered/Not Resolved]
  - Drug dose omission [Unknown]
  - Walking disability [Not Recovered/Not Resolved]
  - Visual impairment [Not Recovered/Not Resolved]
